FAERS Safety Report 11581722 (Version 3)
Quarter: 2016Q4

REPORT INFORMATION
  Report Type: Report from Study
  Country: GB (occurrence: GB)
  Receive Date: 20151001
  Receipt Date: 20161111
  Transmission Date: 20170206
  Serious: Yes (Death, Hospitalization)
  Sender: FDA-Public Use
  Company Number: GB-IPSEN BIOPHARMACEUTICALS, INC.-2015-7415

PATIENT
  Age: 64 Year
  Sex: Male

DRUGS (1)
  1. SOMATULINE AUTOGEL [Suspect]
     Active Substance: LANREOTIDE ACETATE
     Indication: NEUROENDOCRINE TUMOUR
     Dosage: 120 MG
     Route: 058
     Dates: start: 20150729, end: 2015

REACTIONS (2)
  - Intestinal obstruction [Not Recovered/Not Resolved]
  - Multiple organ dysfunction syndrome [Fatal]

NARRATIVE: CASE EVENT DATE: 20150914
